FAERS Safety Report 8311318-4 (Version None)
Quarter: 2012Q2

REPORT INFORMATION
  Report Type: 
  Country: None (occurrence: None)
  Receive Date: 20120425
  Receipt Date: 20120420
  Transmission Date: 20120825
  Serious: Yes (Other)
  Sender: FDA-Public Use
  Company Number: SE-GLAXOSMITHKLINE-B0752644A

PATIENT
  Sex: Male

DRUGS (2)
  1. PANDEMRIX H1N1 [Suspect]
     Indication: PROPHYLAXIS
     Route: 030
     Dates: start: 20091109, end: 20091109
  2. LAMOTRGINE [Suspect]
     Dosage: 100MG UNKNOWN
     Route: 065
     Dates: start: 20110301, end: 20110301

REACTIONS (10)
  - HYPNAGOGIC HALLUCINATION [None]
  - STEVENS-JOHNSON SYNDROME [None]
  - SOMNOLENCE [None]
  - MUSCULAR WEAKNESS [None]
  - TOXIC EPIDERMAL NECROLYSIS [None]
  - FATIGUE [None]
  - NIGHTMARE [None]
  - NARCOLEPSY [None]
  - CATAPLEXY [None]
  - SLEEP DISORDER [None]
